FAERS Safety Report 17551299 (Version 1)
Quarter: 2020Q1

REPORT INFORMATION
  Report Type: Spontaneous
  Country: US (occurrence: US)
  Receive Date: 20200317
  Receipt Date: 20200317
  Transmission Date: 20200409
  Serious: No
  Sender: FDA-Public Use
  Company Number: US-ASTELLAS-2019US034672

PATIENT
  Sex: Female

DRUGS (3)
  1. CRESEMBA [Suspect]
     Active Substance: ISAVUCONAZONIUM SULFATE
     Indication: FUNGAL INFECTION
     Dosage: UNK UNK, UNKNOWN FREQ.
     Route: 065
     Dates: start: 2019
  2. APREMILAST [Interacting]
     Active Substance: APREMILAST
     Indication: PSORIATIC ARTHROPATHY
  3. APREMILAST [Interacting]
     Active Substance: APREMILAST
     Indication: IMMUNODEFICIENCY COMMON VARIABLE
     Route: 048
     Dates: start: 20190522

REACTIONS (2)
  - Fungal infection [Unknown]
  - Drug interaction [Unknown]

NARRATIVE: CASE EVENT DATE: 2019
